FAERS Safety Report 17593717 (Version 1)
Quarter: 2020Q1

REPORT INFORMATION
  Report Type: Spontaneous
  Country: US (occurrence: US)
  Receive Date: 20200327
  Receipt Date: 20200327
  Transmission Date: 20200409
  Serious: No
  Sender: FDA-Public Use
  Company Number: US-GALDERMA-US19066589

PATIENT
  Age: 48 Year
  Sex: Male

DRUGS (3)
  1. DIFFERIN GEL [Suspect]
     Active Substance: ADAPALENE
     Indication: ACNE
     Dosage: 0.1%
     Route: 061
  2. CETAPHIL DAILY FACIAL CLEANSER (REFRESHING BODY WASH) [Suspect]
     Active Substance: COSMETICS
     Indication: PRODUCT USED FOR UNKNOWN INDICATION
     Route: 061
  3. DIFFERIN GEL [Suspect]
     Active Substance: ADAPALENE
     Dosage: 0.1%
     Route: 061

REACTIONS (4)
  - Dry skin [Unknown]
  - Intentional product misuse [Recovered/Resolved]
  - Acne [Unknown]
  - Intentional underdose [Recovered/Resolved]
